FAERS Safety Report 22368779 (Version 1)
Quarter: 2023Q2

REPORT INFORMATION
  Report Type: Spontaneous
  Country: CN (occurrence: CN)
  Receive Date: 20230525
  Receipt Date: 20230525
  Transmission Date: 20230722
  Serious: Yes (Other)
  Sender: FDA-Public Use
  Company Number: CN-FreseniusKabi-FK202307161

PATIENT
  Age: 26 Year
  Sex: Female

DRUGS (2)
  1. PROPOFOL [Suspect]
     Active Substance: PROPOFOL
     Indication: General anaesthesia
     Route: 042
  2. FENTANYL [Concomitant]
     Active Substance: FENTANYL
     Indication: General anaesthesia

REACTIONS (1)
  - Seizure like phenomena [Recovered/Resolved]
